FAERS Safety Report 24702979 (Version 1)
Quarter: 2024Q4

REPORT INFORMATION
  Report Type: Report from Study
  Country: US (occurrence: US)
  Receive Date: 20241205
  Receipt Date: 20241205
  Transmission Date: 20250115
  Serious: Yes (Hospitalization)
  Sender: EISAI
  Company Number: US-Eisai-EC-2024-179954

PATIENT
  Age: 49 Year
  Sex: Female
  Weight: 55.7 kg

DRUGS (30)
  1. LENVIMA [Suspect]
     Active Substance: LENVATINIB
     Indication: Ovarian cancer
     Route: 048
     Dates: end: 2024
  2. LENVIMA [Suspect]
     Active Substance: LENVATINIB
     Route: 048
     Dates: start: 2024
  3. FAMOTIDINE [Concomitant]
     Active Substance: FAMOTIDINE
     Dosage: DOSE AND FREQUENCY UNKNOWN
  4. PROCHLORPERAZINE [Concomitant]
     Active Substance: PROCHLORPERAZINE
     Dosage: DOSE AND FREQUENCY UNKNOWN
  5. DEXTROMETHORPHAN\GUAIFENESIN [Concomitant]
     Active Substance: DEXTROMETHORPHAN\GUAIFENESIN
     Dosage: DOSE AND FREQUENCY UNKNOWN
  6. ACETAMINOPHEN [Concomitant]
     Active Substance: ACETAMINOPHEN
     Dosage: DOSE AND FREQUENCY UNKNOWN
  7. ALBUTEROL SULFATE [Concomitant]
     Active Substance: ALBUTEROL SULFATE
     Dosage: DOSE AND FREQUENCY UNKNOWN
  8. ALLERGY RELIEF CETRIZINE [Concomitant]
     Dosage: DOSE AND FREQUENCY UNKNOWN
  9. CYCLOBENZAPRINE [Concomitant]
     Active Substance: CYCLOBENZAPRINE
     Dosage: DOSE AND FREQUENCY UNKNOWN
  10. FLUOXETINE [Concomitant]
     Active Substance: FLUOXETINE HYDROCHLORIDE
     Dosage: DOSE AND FREQUENCY UNKNOWN
  11. KLONOPIN [Concomitant]
     Active Substance: CLONAZEPAM
     Dosage: DOSE AND FREQUENCY UNKNOWN
  12. GLUTAMINE [Concomitant]
     Active Substance: GLUTAMINE
     Dosage: DOSE AND FREQUENCY UNKNOWN
  13. ACETAMINOPHEN\HYDROCODONE [Concomitant]
     Active Substance: ACETAMINOPHEN\HYDROCODONE
     Dosage: DOSE AND FREQUENCY UNKNOWN
  14. FLONASE ALLERGY RELIEF NASAL [Concomitant]
     Dosage: DOSE AND FREQUENCY UNKNOWN
  15. LIDOCAINE\PRILOCAINE [Concomitant]
     Active Substance: LIDOCAINE\PRILOCAINE
     Dosage: DOSE AND FREQUENCY UNKNOWN
  16. LOPERAMIDE [Concomitant]
     Active Substance: LOPERAMIDE
     Dosage: DOSE AND FREQUENCY UNKNOWN
  17. MULTIVITAMIN/MINERALS [Concomitant]
     Dosage: DOSE AND FREQUENCY UNKNOWN
  18. MYLANTA COAT  COOL [Concomitant]
     Dosage: DOSE AND FREQUENCY UNKNOWN
  19. NEXIUM [Concomitant]
     Active Substance: ESOMEPRAZOLE MAGNESIUM
     Dosage: DOSE AND FREQUENCY UNKNOWN
  20. ONDANSETRON [Concomitant]
     Active Substance: ONDANSETRON
     Dosage: DOSE AND FREQUENCY UNKNOWN
  21. PROBIOTICS NOS [Concomitant]
     Active Substance: PROBIOTICS NOS
     Dosage: DOSE AND FREQUENCY UNKNOWN
  22. RITALIN [Concomitant]
     Active Substance: METHYLPHENIDATE HYDROCHLORIDE
     Dosage: DOSE AND FREQUENCY UNKNOWN
  23. XYZAL [Concomitant]
     Active Substance: LEVOCETIRIZINE DIHYDROCHLORIDE
     Dosage: DOSE AND FREQUENCY UNKNOWN
  24. WELLBUTRIN XL [Concomitant]
     Active Substance: BUPROPION HYDROCHLORIDE
     Dosage: DOSE AND FREQUENCY UNKNOWN
  25. POLYETHYLENE GLYCOL [Concomitant]
     Active Substance: POLYETHYLENE GLYCOL
     Dosage: DOSE AND FREQUENCY UNKNOWN
  26. CETIRIZINE HYDROCHLORIDE [Concomitant]
     Active Substance: CETIRIZINE HYDROCHLORIDE
     Dosage: DOSE AND FREQUENCY UNKNOWN
  27. BACLOFEN [Concomitant]
     Active Substance: BACLOFEN
     Dosage: DOSE AND FREQUENCY UNKNOWN
  28. PROBIOTICS NOS [Concomitant]
     Active Substance: PROBIOTICS NOS
     Dosage: DOSE AND FREQUENCY UNKNOWN
  29. MEDROL [Concomitant]
     Active Substance: METHYLPREDNISOLONE
     Dosage: DOSE AND FREQUENCY UNKNOWN
  30. KETOROLAC [Concomitant]
     Active Substance: KETOROLAC TROMETHAMINE
     Dosage: DOSE AND FREQUENCY UNKNOWN

REACTIONS (2)
  - Gastric pH decreased [Recovering/Resolving]
  - Malnutrition [Recovering/Resolving]

NARRATIVE: CASE EVENT DATE: 20241101
